FAERS Safety Report 9511876 (Version 1)
Quarter: 2013Q3

REPORT INFORMATION
  Report Type: Spontaneous
  Country: CZ (occurrence: None)
  Receive Date: 20130906
  Receipt Date: 20130906
  Transmission Date: 20140515
  Serious: Yes (Hospitalization)
  Sender: FDA-Public Use
  Company Number: SYM-2013-10208

PATIENT
  Age: 67 Year
  Sex: Male

DRUGS (18)
  1. DICLOFENAC [Suspect]
     Indication: PRODUCT USED FOR UNKNOWN INDICATION
  2. WELLBUTRIN SR [Suspect]
     Indication: PRODUCT USED FOR UNKNOWN INDICATION
  3. ARGOFAN [Suspect]
     Indication: DEPRESSION
  4. SIOFOR [Suspect]
     Indication: PRODUCT USED FOR UNKNOWN INDICATION
  5. HYPOGEN [Suspect]
     Indication: INSOMNIA
  6. SEROQUEL [Suspect]
     Indication: PRODUCT USED FOR UNKNOWN INDICATION
     Dosage: IN THE EVENING
  7. VASOCARDIN [Suspect]
     Indication: PRODUCT USED FOR UNKNOWN INDICATION
  8. TORVACARD [Suspect]
     Indication: PRODUCT USED FOR UNKNOWN INDICATION
  9. LOZAP [Suspect]
     Indication: PRODUCT USED FOR UNKNOWN INDICATION
  10. ATARAX [Suspect]
     Indication: PRODUCT USED FOR UNKNOWN INDICATION
  11. LEPONEX [Suspect]
     Indication: PRODUCT USED FOR UNKNOWN INDICATION
  12. LYRICA [Suspect]
     Indication: PRODUCT USED FOR UNKNOWN INDICATION
  13. MONO MACK [Suspect]
     Indication: PRODUCT USED FOR UNKNOWN INDICATION
  14. NAKOM MITE [Suspect]
     Indication: PRODUCT USED FOR UNKNOWN INDICATION
  15. LECARDOP [Suspect]
     Indication: PRODUCT USED FOR UNKNOWN INDICATION
  16. MILGAMMA [Suspect]
     Indication: PRODUCT USED FOR UNKNOWN INDICATION
  17. DORSIFLEX [Suspect]
     Indication: PRODUCT USED FOR UNKNOWN INDICATION
  18. RECOXA [Suspect]
     Indication: PRODUCT USED FOR UNKNOWN INDICATION

REACTIONS (8)
  - Confusional state [None]
  - Fall [None]
  - Hypotension [None]
  - Disorientation [None]
  - Delirium [None]
  - Depression [None]
  - Parkinson^s disease [None]
  - Dementia [None]
